FAERS Safety Report 8842888 (Version 2)
Quarter: 2012Q4

REPORT INFORMATION
  Report Type: 
  Country: US (occurrence: US)
  Receive Date: 20121016
  Receipt Date: 20121109
  Transmission Date: 20130627
  Serious: Yes (Hospitalization)
  Sender: FDA-Public Use
  Company Number: US-GILEAD-2012-0063043

PATIENT
  Sex: Female

DRUGS (1)
  1. LETAIRIS [Suspect]
     Indication: SYSTEMIC SCLEROSIS
     Dosage: 10 mg, UNK
     Route: 048
     Dates: start: 20110701

REACTIONS (3)
  - Unevaluable event [Unknown]
  - Malaise [Unknown]
  - Dyspnoea [Unknown]
